FAERS Safety Report 12522121 (Version 2)
Quarter: 2016Q3

REPORT INFORMATION
  Report Type: Spontaneous
  Country: US (occurrence: US)
  Receive Date: 20160701
  Receipt Date: 20160908
  Transmission Date: 20161109
  Serious: Yes (Other)
  Sender: FDA-Public Use
  Company Number: US-TEVA-672382USA

PATIENT
  Sex: Female

DRUGS (7)
  1. TOPAMAX [Concomitant]
     Active Substance: TOPIRAMATE
  2. RIZATRIPTAN. [Concomitant]
     Active Substance: RIZATRIPTAN
  3. VITAMIN B2 [Concomitant]
     Active Substance: RIBOFLAVIN
  4. ZECUITY [Suspect]
     Active Substance: SUMATRIPTAN SUCCINATE
     Indication: HEADACHE
     Route: 062
     Dates: start: 2016
  5. CAMBIA [Concomitant]
     Active Substance: DICLOFENAC POTASSIUM
  6. PROPRANOLOL [Concomitant]
     Active Substance: PROPRANOLOL\PROPRANOLOL HYDROCHLORIDE
  7. TREXIMET [Concomitant]
     Active Substance: NAPROXEN SODIUM\SUMATRIPTAN SUCCINATE

REACTIONS (18)
  - Application site scar [Not Recovered/Not Resolved]
  - Application site burn [Not Recovered/Not Resolved]
  - Application site erosion [Not Recovered/Not Resolved]
  - Product adhesion issue [Unknown]
  - Application site pain [Not Recovered/Not Resolved]
  - Application site inflammation [Not Recovered/Not Resolved]
  - Drug effect incomplete [Unknown]
  - Application site exfoliation [Not Recovered/Not Resolved]
  - Application site erythema [Not Recovered/Not Resolved]
  - Application site paraesthesia [Not Recovered/Not Resolved]
  - Application site papules [Not Recovered/Not Resolved]
  - Application site pruritus [Not Recovered/Not Resolved]
  - Application site scab [Not Recovered/Not Resolved]
  - Application site discolouration [Not Recovered/Not Resolved]
  - Wrong technique in product usage process [Unknown]
  - Product leakage [Unknown]
  - Application site irritation [Not Recovered/Not Resolved]
  - Application site discomfort [Not Recovered/Not Resolved]

NARRATIVE: CASE EVENT DATE: 2016
